FAERS Safety Report 8281535-0 (Version None)
Quarter: 2012Q2

REPORT INFORMATION
  Report Type: 
  Country: None (occurrence: None)
  Receive Date: 20120413
  Receipt Date: 20120406
  Transmission Date: 20120825
  Serious: Yes (Death, Hospitalization, Other)
  Sender: FDA-Public Use
  Company Number: US-CELGENEUS-163-21880-12040789

PATIENT
  Sex: Male

DRUGS (9)
  1. ZOLPIDEM [Concomitant]
     Route: 065
  2. HYDROCODONE BITARTRATE AND ACETAMINOPHEN [Concomitant]
     Route: 065
  3. REVLIMID [Suspect]
     Indication: MULTIPLE MYELOMA
     Dosage: 10 MILLIGRAM
     Route: 048
     Dates: start: 20101201, end: 20120301
  4. LORAZEPAM [Concomitant]
     Route: 065
  5. TERAZOSIN HCL [Concomitant]
     Route: 065
  6. METHADONE HCL [Concomitant]
     Route: 065
  7. SIMVASTATIN [Concomitant]
     Route: 065
  8. ATENOLOL [Concomitant]
     Route: 065
  9. PAROXETINE [Concomitant]
     Route: 065

REACTIONS (2)
  - PNEUMONIA STAPHYLOCOCCAL [None]
  - PANCYTOPENIA [None]
